FAERS Safety Report 5029063-X (Version None)
Quarter: 2006Q2

REPORT INFORMATION
  Report Type: 
  Country: None (occurrence: None)
  Receive Date: 20060613
  Receipt Date: 20060605
  Transmission Date: 20061013
  Serious: Yes (Hospitalization)
  Sender: FDA-Public Use
  Company Number: S06-FRA-01977-01

PATIENT
  Age: 79 Year
  Sex: Female
  Weight: 60 kg

DRUGS (7)
  1. EBIKA (MEMANTINE) [Suspect]
     Indication: DEMENTIA
     Dates: start: 20040101, end: 20060324
  2. EXELON [Suspect]
     Indication: DEMENTIA
     Dates: start: 20040101, end: 20060324
  3. PLAVIX [Concomitant]
  4. DITROPAN [Concomitant]
  5. AMLODIPINE BESYLATE [Concomitant]
  6. URBANYL (CLOBAZAM) [Concomitant]
  7. ATHYMIL (MIANSERIN HYDROCHLORIDE) [Concomitant]

REACTIONS (4)
  - AUTONOMIC NERVOUS SYSTEM IMBALANCE [None]
  - BEDRIDDEN [None]
  - CONDITION AGGRAVATED [None]
  - PETIT MAL EPILEPSY [None]
